FAERS Safety Report 8442428 (Version 4)
Quarter: 2013Q1

REPORT INFORMATION
  Report Type: Report from Study
  Country: JP (occurrence: JP)
  Receive Date: 20120306
  Receipt Date: 20130224
  Transmission Date: 20140127
  Serious: Yes (Other)
  Sender: FDA-Public Use
  Company Number: JP-US-EMD SERONO, INC.-7115120

PATIENT
  Sex: Female
  Weight: 49 kg

DRUGS (6)
  1. GONAL-F RFF PEN [Suspect]
     Indication: OVULATION INDUCTION
     Route: 058
     Dates: start: 20110913, end: 20110922
  2. HCG [Concomitant]
     Indication: OVULATION INDUCTION
     Route: 030
     Dates: start: 20110923, end: 20110923
  3. HCG [Concomitant]
     Route: 030
     Dates: start: 20110926, end: 20110926
  4. LUTORAL [Concomitant]
     Indication: PRODUCT USED FOR UNKNOWN INDICATION
     Route: 048
     Dates: start: 20110925, end: 20110925
  5. LUTORAL [Concomitant]
     Route: 048
     Dates: start: 20110926, end: 20111006
  6. LUTORAL [Concomitant]
     Route: 048
     Dates: start: 20111007, end: 20111007

REACTIONS (1)
  - Twin pregnancy [Unknown]
